FAERS Safety Report 7958083-8 (Version None)
Quarter: 2011Q4

REPORT INFORMATION
  Report Type: 
  Country: None (occurrence: None)
  Receive Date: 20111205
  Receipt Date: 20111125
  Transmission Date: 20120403
  Serious: Yes (Hospitalization, Other)
  Sender: FDA-Public Use
  Company Number: US-BAYER-2011-045319

PATIENT
  Age: 27 Year
  Sex: Female
  Weight: 116.15 kg

DRUGS (7)
  1. ALLEGRA [Concomitant]
     Dosage: 180 MG, UNK
     Route: 048
  2. SEASONIQUE QUANTITY 91 [Concomitant]
     Dosage: UNK UNK, QD
     Dates: start: 20080815
  3. YASMIN [Suspect]
     Indication: CONTRACEPTION
     Dosage: UNK
     Route: 048
     Dates: start: 20030101, end: 20060101
  4. YAZ [Suspect]
     Indication: CONTRACEPTION
     Dosage: UNK
     Route: 048
     Dates: start: 20060101, end: 20090101
  5. LORTAB [Concomitant]
     Dosage: UNK UNK, PRN
     Route: 048
  6. PROAIR HFA [Concomitant]
     Dosage: 500 MG, UNK
     Route: 048
     Dates: start: 20010101
  7. METHYLPREDNISOLONE ACETATE [Concomitant]
     Dosage: 4 MG, UNK
     Dates: start: 20080617

REACTIONS (6)
  - HEPATIC STEATOSIS [None]
  - ABDOMINAL PAIN UPPER [None]
  - CHOLELITHIASIS [None]
  - PAIN [None]
  - CHOLECYSTITIS CHRONIC [None]
  - BILIARY DILATATION [None]
